FAERS Safety Report 10050148 (Version 1)
Quarter: 2014Q1

REPORT INFORMATION
  Report Type: Spontaneous
  Country: US (occurrence: None)
  Receive Date: 20140331
  Receipt Date: 20140331
  Transmission Date: 20141002
  Serious: Yes (Disabling)
  Sender: FDA-Public Use
  Company Number: None

PATIENT
  Age: 46 Year
  Sex: Female
  Weight: 65.77 kg

DRUGS (1)
  1. ZETONNA [Suspect]
     Indication: UPPER-AIRWAY COUGH SYNDROME
     Dosage: 1 SPRAY BOTH NARES ONCE A DAY ONCE DAILY INHALATION
     Route: 055
     Dates: start: 20140101, end: 20140306

REACTIONS (1)
  - Nasal septum perforation [None]
